FAERS Safety Report 18836786 (Version 1)
Quarter: 2021Q1

REPORT INFORMATION
  Report Type: Spontaneous
  Country: US (occurrence: US)
  Receive Date: 20210203
  Receipt Date: 20210203
  Transmission Date: 20210419
  Serious: No
  Sender: FDA-Public Use
  Company Number: US-ALLERGAN-2013255US

PATIENT
  Sex: Female

DRUGS (3)
  1. JUVEDERM ULTRA XC [Suspect]
     Active Substance: HYALURONIC ACID\LIDOCAINE HYDROCHLORIDE
     Indication: DERMAL FILLER INJECTION
     Dosage: AT LEAST 2 SYRINGES SINGLE
     Route: 065
     Dates: start: 202003, end: 202003
  2. BOTOX [Suspect]
     Active Substance: ONABOTULINUMTOXINA
     Indication: PRODUCT USED FOR UNKNOWN INDICATION
     Dosage: UNK, SINGLE
  3. JUVEDERM ULTRA PLUS [Suspect]
     Active Substance: HYALURONIC ACID\LIDOCAINE HYDROCHLORIDE
     Indication: DERMAL FILLER INJECTION
     Dosage: AT LEAST 2 SYRINGES SINGLE
     Route: 065
     Dates: start: 202003, end: 202003

REACTIONS (3)
  - Mouth swelling [Not Recovered/Not Resolved]
  - Speech disorder [Not Recovered/Not Resolved]
  - Oral disorder [Not Recovered/Not Resolved]

NARRATIVE: CASE EVENT DATE: 202003
